FAERS Safety Report 21948922 (Version 1)
Quarter: 2023Q1

REPORT INFORMATION
  Report Type: Spontaneous
  Country: US (occurrence: None)
  Receive Date: 20230202
  Receipt Date: 20230202
  Transmission Date: 20230418
  Serious: No
  Sender: FDA-Public Use
  Company Number: None

PATIENT
  Age: 57 Year
  Sex: Female
  Weight: 79.79 kg

DRUGS (14)
  1. PROMACTA [Suspect]
     Active Substance: ELTROMBOPAG OLAMINE
     Indication: Thrombocytopenia
     Dosage: FREQUENCY : DAILY;?
     Route: 048
  2. ACETAMINOPHEN [Concomitant]
     Active Substance: ACETAMINOPHEN
  3. BOTOX [Concomitant]
     Active Substance: ONABOTULINUMTOXINA
  4. VITAMIN C [Concomitant]
     Active Substance: ASCORBIC ACID
  5. DIAZEPAM [Concomitant]
     Active Substance: DIAZEPAM
  6. HAIR SKIN AND NAILS [Concomitant]
  7. LACTULOSE [Concomitant]
     Active Substance: LACTULOSE
  8. LEVOTHYROXINE [Concomitant]
     Active Substance: LEVOTHYROXINE
  9. MAGNESIUM OXIDE [Concomitant]
     Active Substance: MAGNESIUM OXIDE
  10. VITAMINS [Concomitant]
     Active Substance: VITAMINS
  11. NURTEC ODT [Concomitant]
     Active Substance: RIMEGEPANT SULFATE
  12. STOOL SOFTENER (DOCUSATE) [Concomitant]
     Active Substance: DOCUSATE
  13. TOPIRAMATE [Concomitant]
     Active Substance: TOPIRAMATE
  14. TRAMADOL [Concomitant]
     Active Substance: TRAMADOL

REACTIONS (1)
  - Ammonia increased [None]
